FAERS Safety Report 4519502-2 (Version None)
Quarter: 2004Q4

REPORT INFORMATION
  Report Type: 
  Country: None (occurrence: None)
  Receive Date: 20041202
  Receipt Date: 20041118
  Transmission Date: 20050328
  Serious: Yes (Hospitalization)
  Sender: FDA-Public Use
  Company Number: MK200411-0315-1

PATIENT
  Sex: Male

DRUGS (1)
  1. TECHNESCAN HDP [Suspect]
     Indication: SCAN BONE MARROW
     Dosage: 600 MBQ, SINGLE USE
     Dates: start: 20041007, end: 20041007

REACTIONS (1)
  - ASTHMA [None]
